FAERS Safety Report 5262870-7 (Version None)
Quarter: 2007Q1

REPORT INFORMATION
  Report Type: 
  Country: None (occurrence: None)
  Receive Date: 20070312
  Receipt Date: 20070306
  Transmission Date: 20070707
  Serious: Yes (Other)
  Sender: FDA-Public Use
  Company Number: GB-GLAXOSMITHKLINE-B0461430A

PATIENT
  Sex: Female

DRUGS (1)
  1. NIQUITIN CQ CLEAR 14MG [Suspect]
     Route: 062

REACTIONS (3)
  - PRURITUS GENERALISED [None]
  - PSORIASIS [None]
  - SKIN EXFOLIATION [None]
